FAERS Safety Report 20505269 (Version 1)
Quarter: 2022Q1

REPORT INFORMATION
  Report Type: Report from Study
  Country: IT (occurrence: IT)
  Receive Date: 20220223
  Receipt Date: 20220223
  Transmission Date: 20220423
  Serious: Yes (Hospitalization, Other)
  Sender: FDA-Public Use
  Company Number: IT-JNJFOC-20220245425

PATIENT

DRUGS (3)
  1. RISPERDAL [Interacting]
     Active Substance: RISPERIDONE
     Indication: Schizoaffective disorder
     Dosage: DEFINED DAILY DOSE; 5 (1.2)
     Route: 065
  2. CLOZAPINE [Interacting]
     Active Substance: CLOZAPINE
     Indication: Product used for unknown indication
     Route: 065
  3. LITHIUM CARBONATE [Concomitant]
     Active Substance: LITHIUM CARBONATE
     Indication: Product used for unknown indication
     Route: 065

REACTIONS (2)
  - Dystonia [Unknown]
  - Drug interaction [Unknown]
